FAERS Safety Report 5179486-3 (Version None)
Quarter: 2006Q4

REPORT INFORMATION
  Report Type: 
  Country: None (occurrence: None)
  Receive Date: 20061219
  Receipt Date: 20061211
  Transmission Date: 20070319
  Serious: Yes (Death, Other)
  Sender: FDA-Public Use
  Company Number: CA-ELI_LILLY_AND_COMPANY-CA200612002438

PATIENT
  Sex: Male

DRUGS (1)
  1. XIGRIS [Suspect]
     Indication: SEPSIS
     Dosage: UNK, UNK
     Dates: start: 20061129, end: 20061130

REACTIONS (2)
  - DEATH [None]
  - GASTROINTESTINAL HAEMORRHAGE [None]
